FAERS Safety Report 14923657 (Version 1)
Quarter: 2018Q2

REPORT INFORMATION
  Report Type: Spontaneous
  Country: US (occurrence: US)
  Receive Date: 20180503
  Receipt Date: 20180503
  Transmission Date: 20180711
  Serious: Yes (Death)
  Sender: FDA-Public Use
  Company Number: None

PATIENT
  Age: 94 Year
  Sex: Female

DRUGS (3)
  1. MULTI-VIT TAB [Concomitant]
  2. ASPIRIN CHEWABLE [Concomitant]
     Active Substance: ASPIRIN
  3. EYLEA [Suspect]
     Active Substance: AFLIBERCEPT
     Indication: NEOVASCULAR AGE-RELATED MACULAR DEGENERATION
     Dosage: ?          OTHER FREQUENCY:Q28D;?
     Route: 047
     Dates: start: 20161105, end: 20180430

REACTIONS (1)
  - Death [None]

NARRATIVE: CASE EVENT DATE: 20180501
